FAERS Safety Report 4955013-8 (Version None)
Quarter: 2006Q1

REPORT INFORMATION
  Report Type: 
  Country: None (occurrence: None)
  Receive Date: 20060322
  Receipt Date: 20060307
  Transmission Date: 20060701
  Serious: Yes (Disabling, Other)
  Sender: FDA-Public Use
  Company Number: 200512411BWH

PATIENT
  Age: 50 Year
  Sex: Male

DRUGS (4)
  1. LEVITRA [Suspect]
     Dosage: SEE IMAGE
     Route: 048
     Dates: start: 20050505
  2. LEVITRA [Suspect]
     Dosage: SEE IMAGE
     Route: 048
     Dates: start: 20050505
  3. TOPROL-XL [Concomitant]
  4. LASIX [Concomitant]

REACTIONS (4)
  - BLINDNESS TRANSIENT [None]
  - BLINDNESS UNILATERAL [None]
  - VISION BLURRED [None]
  - VITREOUS DETACHMENT [None]
